FAERS Safety Report 8927125 (Version 6)
Quarter: 2013Q2

REPORT INFORMATION
  Report Type: Spontaneous
  Country: US (occurrence: US)
  Receive Date: 20121127
  Receipt Date: 20130422
  Transmission Date: 20140414
  Serious: Yes (Other)
  Sender: FDA-Public Use
  Company Number: US-ASTRAZENECA-2009UW05095

PATIENT
  Age: 70 Year
  Sex: Female
  Weight: 50.8 kg

DRUGS (6)
  1. ARIMIDEX [Suspect]
     Route: 048
     Dates: start: 200809
  2. NEXIUM [Suspect]
     Indication: GASTROOESOPHAGEAL REFLUX DISEASE
     Route: 048
  3. PRILOSEC OTC [Suspect]
     Route: 048
  4. ZANAX [Concomitant]
  5. VITAMINS [Concomitant]
  6. PREVACID [Concomitant]

REACTIONS (19)
  - Arthropathy [Unknown]
  - Muscle injury [Unknown]
  - Monoplegia [Unknown]
  - Hyperchlorhydria [Unknown]
  - Hernia [Unknown]
  - Skin lesion [Unknown]
  - Pain in extremity [Not Recovered/Not Resolved]
  - Pain in extremity [Unknown]
  - Weight decreased [Unknown]
  - Arthritis [Unknown]
  - Dyspepsia [Unknown]
  - Hot flush [Unknown]
  - Eating disorder [Unknown]
  - Gastrooesophageal reflux disease [Unknown]
  - Vomiting [Unknown]
  - Malaise [Unknown]
  - Intentional drug misuse [Unknown]
  - Drug dose omission [Unknown]
  - Drug ineffective [Unknown]
